FAERS Safety Report 18512081 (Version 1)
Quarter: 2020Q4

REPORT INFORMATION
  Report Type: Spontaneous
  Country: US (occurrence: US)
  Receive Date: 20201117
  Receipt Date: 20201117
  Transmission Date: 20210114
  Serious: Yes (Other)
  Sender: FDA-Public Use
  Company Number: US-PURDUE-USA-2020-0166894

PATIENT
  Age: 53 Year
  Sex: Female

DRUGS (9)
  1. OXYCONTIN [Suspect]
     Active Substance: OXYCODONE HYDROCHLORIDE
     Indication: CERVICAL SPINAL STENOSIS
  2. PROGESTERONE. [Concomitant]
     Active Substance: PROGESTERONE
     Indication: PRODUCT USED FOR UNKNOWN INDICATION
     Dosage: 200 MG, UNK
     Route: 065
  3. OXYCODONE HCL TABLETS (RHODES 91-490) [Suspect]
     Active Substance: OXYCODONE HYDROCHLORIDE
     Indication: PRODUCT USED FOR UNKNOWN INDICATION
     Dosage: UNK
     Route: 048
  4. OXYCONTIN [Suspect]
     Active Substance: OXYCODONE HYDROCHLORIDE
     Indication: PAIN
     Dosage: 20 MG, BID
     Route: 048
     Dates: start: 2014
  5. OXYCODONE HYDROCHLORIDE (SIMILAR TO NDA 22-272) [Suspect]
     Active Substance: OXYCODONE HYDROCHLORIDE
     Indication: CERVICAL SPINAL STENOSIS
     Dosage: 10 MG, 1/2-1 PILL Q5H
     Route: 048
  6. OXYCODONE HYDROCHLORIDE (SIMILAR TO NDA 22-272) [Suspect]
     Active Substance: OXYCODONE HYDROCHLORIDE
     Indication: PAIN
     Dosage: 20 MG, UNK
     Route: 048
     Dates: start: 2014
  7. TESTOSTERONE. [Concomitant]
     Active Substance: TESTOSTERONE
     Indication: PRODUCT USED FOR UNKNOWN INDICATION
     Dosage: 5 MG, UNK
     Route: 065
  8. OXYCONTIN [Suspect]
     Active Substance: OXYCODONE HYDROCHLORIDE
     Indication: NECK PAIN
  9. MS CONTIN [Suspect]
     Active Substance: MORPHINE SULFATE
     Indication: PRODUCT USED FOR UNKNOWN INDICATION
     Dosage: UNK
     Route: 048

REACTIONS (39)
  - Drug dependence [Unknown]
  - Product prescribing issue [Unknown]
  - Disturbance in attention [Unknown]
  - Drug ineffective [Unknown]
  - Irritable bowel syndrome [Unknown]
  - Post-traumatic stress disorder [Unknown]
  - Diverticulum [Unknown]
  - Dehydration [Unknown]
  - Frustration tolerance decreased [Unknown]
  - Suicidal ideation [Unknown]
  - Mental impairment [Unknown]
  - Cystocele [Unknown]
  - Rectocele [Unknown]
  - Haemorrhoids [Unknown]
  - Major depression [Unknown]
  - Tremor [Unknown]
  - Anxiety [Unknown]
  - Nervousness [Unknown]
  - Muscle spasms [Unknown]
  - Blood pressure increased [Unknown]
  - Pancreatitis [Unknown]
  - Agitation [Unknown]
  - Pain [Unknown]
  - Constipation [Unknown]
  - Nausea [Unknown]
  - Gastritis [Unknown]
  - Apathy [Unknown]
  - Amnesia [Unknown]
  - Seizure [Unknown]
  - Gastrooesophageal reflux disease [Unknown]
  - Dyspnoea paroxysmal nocturnal [Unknown]
  - Anxiety disorder [Unknown]
  - Oesophagitis [Unknown]
  - General physical health deterioration [Unknown]
  - Illness [Unknown]
  - Dolichocolon [Unknown]
  - Drug withdrawal syndrome [Unknown]
  - Abdominal pain [Unknown]
  - Emotional distress [Unknown]

NARRATIVE: CASE EVENT DATE: 20181017
